FAERS Safety Report 7248399-5 (Version None)
Quarter: 2011Q1

REPORT INFORMATION
  Report Type: 
  Country: None (occurrence: None)
  Receive Date: 20110127
  Receipt Date: 20110114
  Transmission Date: 20110831
  Serious: Yes (Other)
  Sender: FDA-Public Use
  Company Number: US-ELI_LILLY_AND_COMPANY-US201101004481

PATIENT
  Sex: Male

DRUGS (4)
  1. ALIMTA [Suspect]
     Indication: NON-SMALL CELL LUNG CANCER
  2. AMBIEN [Concomitant]
     Indication: PAIN
  3. ZOMETA [Concomitant]
  4. PRILOSEC [Concomitant]
     Indication: REFLUX OESOPHAGITIS

REACTIONS (5)
  - GENERAL PHYSICAL HEALTH DETERIORATION [None]
  - PAIN [None]
  - PRODUCTIVE COUGH [None]
  - MALIGNANT ASCITES [None]
  - GASTROOESOPHAGEAL REFLUX DISEASE [None]
